FAERS Safety Report 8622458-4 (Version None)
Quarter: 2012Q3

REPORT INFORMATION
  Report Type: 
  Country: None (occurrence: None)
  Receive Date: 20120827
  Receipt Date: 20120816
  Transmission Date: 20120928
  Serious: Yes (Hospitalization)
  Sender: FDA-Public Use
  Company Number: IT-ACCORD-014463

PATIENT
  Sex: Female
  Weight: 60 kg

DRUGS (2)
  1. PACLITAXEL [Suspect]
     Indication: BREAST CANCER
     Dosage: FREQUENCY: CYCLIC DOSE: 175 MG FOR SQUARE METER OF BODY SURFACE
     Route: 042
     Dates: start: 20120806, end: 20120806
  2. CARBOPLATIN [Concomitant]
     Indication: BREAST CANCER

REACTIONS (3)
  - ARTHRALGIA [None]
  - AUTONOMIC NERVOUS SYSTEM IMBALANCE [None]
  - ABDOMINAL PAIN UPPER [None]
